FAERS Safety Report 4509559-7 (Version None)
Quarter: 2004Q4

REPORT INFORMATION
  Report Type: 
  Country: None (occurrence: None)
  Receive Date: 20041119
  Receipt Date: 20041028
  Transmission Date: 20050328
  Serious: Yes (Hospitalization, Other)
  Sender: FDA-Public Use
  Company Number: USA041082552

PATIENT
  Age: 73 Year
  Sex: Male

DRUGS (4)
  1. HUMALOG [Suspect]
     Dosage: UNK
     Route: 065
  2. HUMULIN R [Suspect]
     Dosage: UNK
     Route: 065
  3. HUMULIN 70/30 [Suspect]
     Dosage: UNK
     Route: 065
  4. LANTUS [Concomitant]

REACTIONS (20)
  - ASTHENIA [None]
  - BLOOD GLUCOSE DECREASED [None]
  - BLOOD GLUCOSE INCREASED [None]
  - BLOOD PRESSURE DECREASED [None]
  - CHILLS [None]
  - DEMENTIA [None]
  - ENCEPHALITIS [None]
  - GANGRENE [None]
  - HYPERHIDROSIS [None]
  - HYPOTONIA [None]
  - INJECTION SITE STINGING [None]
  - LETHARGY [None]
  - NAUSEA [None]
  - POOR PERIPHERAL CIRCULATION [None]
  - RESPIRATORY DISORDER [None]
  - SPEECH DISORDER [None]
  - THROAT IRRITATION [None]
  - THROAT TIGHTNESS [None]
  - WEST NILE VIRAL INFECTION [None]
  - WOUND [None]
